FAERS Safety Report 6983354-1 (Version None)
Quarter: 2010Q3

REPORT INFORMATION
  Report Type: 
  Country: None (occurrence: None)
  Receive Date: 20100914
  Receipt Date: 20100901
  Transmission Date: 20110219
  Serious: Yes (Hospitalization, Other)
  Sender: FDA-Public Use
  Company Number: PHHY2010JP59168

PATIENT
  Sex: Female

DRUGS (10)
  1. DIOVAN [Suspect]
     Indication: HYPERTENSION
     Dosage: 40 MG, QD
     Route: 048
     Dates: start: 20080626, end: 20080723
  2. DIOVAN [Suspect]
     Dosage: 80 MG, QD
     Route: 048
     Dates: start: 20080724, end: 20080820
  3. DIOVAN [Suspect]
     Dosage: 160 MG, QD
     Route: 048
     Dates: start: 20080821, end: 20100104
  4. MOBIC [Suspect]
     Dosage: 10 MG
     Route: 048
     Dates: start: 20091217, end: 20100218
  5. NORVASC [Concomitant]
     Indication: HYPERTENSION
     Dosage: 2.5 MG
     Route: 048
     Dates: start: 20080910
  6. NORVASC [Concomitant]
     Dosage: 5 MG
     Route: 048
  7. NORVASC [Concomitant]
     Dosage: 2.5 MG
     Route: 048
     Dates: end: 20100221
  8. LUPRAC [Concomitant]
     Dosage: 4 MG
     Route: 048
     Dates: start: 20090206, end: 20091204
  9. OPALMON [Concomitant]
     Dosage: 15?G
     Route: 048
     Dates: start: 20051027, end: 20100104
  10. INFREE S [Concomitant]
     Dosage: 200 MG
     Route: 048
     Dates: start: 20051027, end: 20091204

REACTIONS (6)
  - BLOOD PRESSURE DIASTOLIC DECREASED [None]
  - GASTRIC ULCER HAEMORRHAGE [None]
  - HAEMOGLOBIN DECREASED [None]
  - HYPERLIPIDAEMIA [None]
  - HYPOTENSION [None]
  - TRANSIENT ISCHAEMIC ATTACK [None]
